FAERS Safety Report 21848850 (Version 1)
Quarter: 2023Q1

REPORT INFORMATION
  Report Type: Spontaneous
  Country: US (occurrence: None)
  Receive Date: 20230110
  Receipt Date: 20230110
  Transmission Date: 20230417
  Serious: No
  Sender: FDA-Public Use
  Company Number: None

PATIENT
  Age: 64 Year
  Sex: Female

DRUGS (1)
  1. COSENTYX [Suspect]
     Active Substance: SECUKINUMAB
     Dosage: 150MG OTHER SUBCUTANEOUS
     Route: 058
     Dates: start: 202011

REACTIONS (2)
  - Cellulitis [None]
  - Therapy cessation [None]

NARRATIVE: CASE EVENT DATE: 20230110
